FAERS Safety Report 9258008 (Version 1)
Quarter: 2013Q2

REPORT INFORMATION
  Report Type: Spontaneous
  Country: US (occurrence: None)
  Receive Date: 20130424
  Receipt Date: 20130424
  Transmission Date: 20140414
  Serious: No
  Sender: FDA-Public Use
  Company Number: None

PATIENT
  Sex: Female
  Weight: 70.31 kg

DRUGS (2)
  1. DILTIAZEM [Suspect]
     Indication: HEART RATE DECREASED
     Dosage: 1 TABLET
     Dates: start: 20130329, end: 20130401
  2. CARDIZEM [Suspect]

REACTIONS (4)
  - Mood altered [None]
  - Agitation [None]
  - Crying [None]
  - Abnormal dreams [None]
